FAERS Safety Report 18531615 (Version 2)
Quarter: 2020Q4

REPORT INFORMATION
  Report Type: Report from Study
  Country: None (occurrence: DE)
  Receive Date: 20201123
  Receipt Date: 20201214
  Transmission Date: 20210114
  Serious: Yes (Death)
  Sender: FDA-Public Use
  Company Number: DE-ABBVIE-20K-062-3661269-00

PATIENT
  Age: 81 Year
  Sex: Male
  Weight: 77 kg

DRUGS (11)
  1. FRESUBIN [Concomitant]
     Active Substance: AMINO ACIDS\DEXTROSE\ELECTROLYTES NOS\SOYBEAN OIL\VITAMINS
     Indication: NUTRITIONAL SUPPLEMENTATION
     Dosage: LIQUID 500ML
     Route: 050
  2. DUODOPA [Suspect]
     Active Substance: CARBIDOPA\LEVODOPA
     Dosage: MD 8.0 ML CRD 1.9ML/H (7-21 H) CRN 0.5 ML/H (21-7H) ED 2.5 ML
     Route: 050
     Dates: start: 202011
  3. DUODOPA [Suspect]
     Active Substance: CARBIDOPA\LEVODOPA
     Indication: PARKINSON^S DISEASE
     Dosage: MD 8.0 ML CRD 2.4ML/H CRN 0.5 ML/H ED 2.5 ML
     Route: 050
     Dates: start: 20201105, end: 202011
  4. FLUDROCORTISONE [Concomitant]
     Active Substance: FLUDROCORTISONE
     Indication: CARDIOVASCULAR DISORDER
  5. L-THYROXIN [Concomitant]
     Active Substance: LEVOTHYROXINE SODIUM
     Indication: HYPOTHYROIDISM
  6. SALBUTAMOL [Concomitant]
     Active Substance: ALBUTEROL
     Indication: RESPIRATION ABNORMAL
     Dosage: PATRON, OXYGEN MASK
     Route: 055
  7. RIVASTIGMIN [Concomitant]
     Active Substance: RIVASTIGMINE
     Indication: DEMENTIA
  8. MIDODRIN [Concomitant]
     Indication: CARDIOVASCULAR DISORDER
     Dosage: LIQUID 2.5MG
     Route: 050
  9. CLOZAPIN [Concomitant]
     Active Substance: CLOZAPINE
     Indication: HALLUCINATION
     Route: 050
  10. FINASTERID [Concomitant]
     Active Substance: FINASTERIDE
     Indication: BLADDER DISORDER
  11. METAMIZOL [Concomitant]
     Active Substance: METAMIZOLE SODIUM
     Indication: PAIN

REACTIONS (9)
  - Dyskinesia [Unknown]
  - On and off phenomenon [Unknown]
  - Cardiac failure [Fatal]
  - Haemoglobin decreased [Unknown]
  - Haematocrit decreased [Unknown]
  - C-reactive protein increased [Unknown]
  - Troponin increased [Not Recovered/Not Resolved]
  - Unevaluable event [Unknown]
  - Microangiopathy [Unknown]

NARRATIVE: CASE EVENT DATE: 20201023
